FAERS Safety Report 18699649 (Version 2)
Quarter: 2021Q1

REPORT INFORMATION
  Report Type: Report from Study
  Country: US (occurrence: US)
  Receive Date: 20210104
  Receipt Date: 20210317
  Transmission Date: 20210419
  Serious: Yes (Other)
  Sender: FDA-Public Use
  Company Number: US-TAKEDA-US201911513

PATIENT
  Sex: Female

DRUGS (1)
  1. GAMMAGARD LIQUID [Suspect]
     Active Substance: HUMAN IMMUNOGLOBULIN G
     Indication: PRIMARY IMMUNODEFICIENCY SYNDROME
     Dosage: 8 GRAM, 1X/WEEK
     Route: 065

REACTIONS (7)
  - Blepharitis [Unknown]
  - Transient ischaemic attack [Unknown]
  - Inability to afford medication [Unknown]
  - Wrong technique in product usage process [Unknown]
  - Viral infection [Unknown]
  - Weight decreased [Unknown]
  - Stress [Unknown]
